FAERS Safety Report 9330509 (Version 1)
Quarter: 2013Q2

REPORT INFORMATION
  Report Type: Spontaneous
  Country: US (occurrence: None)
  Receive Date: 20130604
  Receipt Date: 20130604
  Transmission Date: 20140414
  Serious: Yes (Life-Threatening, Hospitalization)
  Sender: FDA-Public Use
  Company Number: None

PATIENT
  Age: 68 Year
  Sex: Male
  Weight: 97 kg

DRUGS (1)
  1. TISSUE PLASMINOGEN ACTIVATOR, RECOMBINANT [Suspect]

REACTIONS (3)
  - Asthenia [None]
  - Hyperhidrosis [None]
  - Mental status changes [None]
